FAERS Safety Report 13067436 (Version 1)
Quarter: 2016Q4

REPORT INFORMATION
  Report Type: Spontaneous
  Country: EG (occurrence: EG)
  Receive Date: 20161228
  Receipt Date: 20161228
  Transmission Date: 20170207
  Serious: Yes (Death)
  Sender: FDA-Public Use
  Company Number: EG-CIPLA LTD.-2016EG23756

PATIENT

DRUGS (4)
  1. GEMCITABINE [Suspect]
     Active Substance: GEMCITABINE\GEMCITABINE HYDROCHLORIDE
     Indication: OVARIAN EPITHELIAL CANCER
     Dosage: 1000 MG/M2, AS A 100 MIN INFUSION AFTER DILUTION IN 250 ML NORMAL SALINE ON DAYS 1 AND 8
     Route: 042
  2. DEXAMETHASONE. [Concomitant]
     Active Substance: DEXAMETHASONE
     Indication: ANTIEMETIC SUPPORTIVE CARE
     Dosage: 8 MG, 8 MG, 30 MIN BEFORE CHEMOTHERAPY ADMINISTRATION
     Route: 042
  3. OXALIPLATIN. [Suspect]
     Active Substance: OXALIPLATIN
     Indication: OVARIAN EPITHELIAL CANCER
     Dosage: 100 MG/M2, ON DAY 1, OVER 2 H 30 MIN, AFTER GEM INFUSION DILUTED IN 250 ML OF 5% GLUCOSE
     Route: 065
  4. ONDANSETRON [Concomitant]
     Active Substance: ONDANSETRON
     Indication: ANTIEMETIC SUPPORTIVE CARE
     Dosage: 16 MG, UNK
     Route: 065

REACTIONS (1)
  - Death [Fatal]
